FAERS Safety Report 16074650 (Version 9)
Quarter: 2022Q4

REPORT INFORMATION
  Report Type: Report from Study
  Country: CL (occurrence: CL)
  Receive Date: 20190314
  Receipt Date: 20221111
  Transmission Date: 20230113
  Serious: Yes (Hospitalization, Other)
  Sender: FDA-Public Use
  Company Number: CL-BRISTOL-MYERS SQUIBB COMPANY-BMS-2019-007755

PATIENT
  Age: 67 Year
  Sex: Male
  Weight: 74 kg

DRUGS (7)
  1. RUCAPARIB [Suspect]
     Active Substance: RUCAPARIB
     Indication: Prostate cancer metastatic
     Dosage: MOST RECENT DOSE WAS ON 20-NOV-2018?ACTION TAKEN: DOSE REDUCED WITH RESPECT TO THE EVENTS OF ACUTE?R
     Route: 048
     Dates: start: 20180814, end: 20181120
  2. ZOMETA [Concomitant]
     Active Substance: ZOLEDRONIC ACID
     Indication: Product used for unknown indication
     Route: 042
     Dates: start: 2018
  3. CALCIUM [Concomitant]
     Active Substance: CALCIUM
     Indication: Product used for unknown indication
     Route: 048
     Dates: start: 2017
  4. CEFADROXIL [Concomitant]
     Active Substance: CEFADROXIL
     Indication: Product used for unknown indication
     Route: 048
     Dates: start: 20180828
  5. LOSARTAN [Concomitant]
     Active Substance: LOSARTAN
     Indication: Product used for unknown indication
     Dosage: BID
     Route: 048
     Dates: start: 2003
  6. METFORMIN [Concomitant]
     Active Substance: METFORMIN HYDROCHLORIDE
     Indication: Product used for unknown indication
     Dosage: DOSAGE: 850 UNIT NOS
     Route: 048
     Dates: start: 2010
  7. TRIPTORELIN [Concomitant]
     Active Substance: TRIPTORELIN
     Indication: Product used for unknown indication
     Route: 030
     Dates: start: 2016

REACTIONS (4)
  - Acute kidney injury [Recovered/Resolved]
  - Neutropenia [Recovered/Resolved]
  - Anaemia [Recovered/Resolved]
  - Urosepsis [Recovered/Resolved]

NARRATIVE: CASE EVENT DATE: 20181009
